FAERS Safety Report 19505054 (Version 4)
Quarter: 2021Q3

REPORT INFORMATION
  Report Type: Spontaneous
  Country: CA (occurrence: CA)
  Receive Date: 20210708
  Receipt Date: 20210810
  Transmission Date: 20211014
  Serious: Yes (Other)
  Sender: FDA-Public Use
  Company Number: CA-ROCHE-2862169

PATIENT
  Sex: Female
  Weight: 97 kg

DRUGS (48)
  1. ORENCIA [Suspect]
     Active Substance: ABATACEPT
     Indication: RHEUMATOID ARTHRITIS
     Route: 058
  2. ARAVA [Suspect]
     Active Substance: LEFLUNOMIDE
     Indication: PRODUCT USED FOR UNKNOWN INDICATION
     Route: 065
  3. METHOTREXATE SODIUM. [Suspect]
     Active Substance: METHOTREXATE SODIUM
     Indication: PRODUCT USED FOR UNKNOWN INDICATION
     Route: 065
  4. ACTEMRA [Suspect]
     Active Substance: TOCILIZUMAB
     Indication: PRODUCT USED FOR UNKNOWN INDICATION
     Route: 042
  5. CIMZIA [Suspect]
     Active Substance: CERTOLIZUMAB PEGOL
     Route: 058
  6. SIMPONI [Suspect]
     Active Substance: GOLIMUMAB
     Indication: PRODUCT USED FOR UNKNOWN INDICATION
     Route: 058
  7. HYDROXYCHLOROQUINE [Concomitant]
     Active Substance: HYDROXYCHLOROQUINE
  8. ONE ALPHA [Concomitant]
     Active Substance: ALFACALCIDOL
  9. CIMZIA [Suspect]
     Active Substance: CERTOLIZUMAB PEGOL
     Route: 058
  10. PERIOGARD [Suspect]
     Active Substance: CHLORHEXIDINE GLUCONATE
     Indication: PRODUCT USED FOR UNKNOWN INDICATION
     Route: 002
  11. PLAQUENIL [Concomitant]
     Active Substance: HYDROXYCHLOROQUINE SULFATE
  12. ACETAMINOPHEN. [Suspect]
     Active Substance: ACETAMINOPHEN
     Indication: PRODUCT USED FOR UNKNOWN INDICATION
     Route: 065
  13. CIMZIA [Suspect]
     Active Substance: CERTOLIZUMAB PEGOL
     Indication: RHEUMATOID ARTHRITIS
     Route: 058
  14. METHOTREXATE. [Suspect]
     Active Substance: METHOTREXATE
     Indication: RHEUMATOID ARTHRITIS
     Route: 065
  15. CETIRIZINE [Concomitant]
     Active Substance: CETIRIZINE HYDROCHLORIDE
  16. ERGOCALCIFEROL. [Concomitant]
     Active Substance: ERGOCALCIFEROL
  17. UBIDECARENONE. [Concomitant]
     Active Substance: UBIDECARENONE
  18. MARVELON [Concomitant]
     Active Substance: DESOGESTREL\ETHINYL ESTRADIOL
  19. TYLENOL [Concomitant]
     Active Substance: ACETAMINOPHEN
  20. PREDNISONE. [Concomitant]
     Active Substance: PREDNISONE
  21. CHLORAPREP ONE?STEP [Suspect]
     Active Substance: CHLORHEXIDINE GLUCONATE\ISOPROPYL ALCOHOL
     Indication: PRODUCT USED FOR UNKNOWN INDICATION
     Route: 061
  22. ENBREL [Suspect]
     Active Substance: ETANERCEPT
     Indication: RHEUMATOID ARTHRITIS
     Route: 058
  23. ORENCIA [Suspect]
     Active Substance: ABATACEPT
     Route: 058
  24. ORENCIA [Suspect]
     Active Substance: ABATACEPT
     Route: 058
  25. OXYCODONE TEREPHTHALATE [Suspect]
     Active Substance: OXYCODONE TEREPHTHALATE
     Indication: PRODUCT USED FOR UNKNOWN INDICATION
     Route: 065
  26. SULFAMETHOXAZOLE AND TRIMETHOPRIM [Suspect]
     Active Substance: SULFAMETHOXAZOLE\TRIMETHOPRIM
     Indication: PRODUCT USED FOR UNKNOWN INDICATION
     Route: 065
  27. APO?ZOPICLONE [Concomitant]
     Active Substance: ZOPICLONE
  28. IBUPROFEN. [Concomitant]
     Active Substance: IBUPROFEN
  29. DESOGESTREL;ETHINYLESTRADIOL [Concomitant]
     Active Substance: DESOGESTREL\ETHINYL ESTRADIOL
  30. REACTINE (CANADA) [Concomitant]
     Active Substance: CETIRIZINE HYDROCHLORIDE
  31. CIMZIA [Suspect]
     Active Substance: CERTOLIZUMAB PEGOL
     Route: 058
  32. LEFLUNOMIDE. [Suspect]
     Active Substance: LEFLUNOMIDE
     Indication: PRODUCT USED FOR UNKNOWN INDICATION
     Route: 065
  33. OXYCODONE AND ACETAMINOPHEN [Suspect]
     Active Substance: ACETAMINOPHEN\OXYCODONE HYDROCHLORIDE
     Indication: PRODUCT USED FOR UNKNOWN INDICATION
     Route: 065
  34. FISH OIL [Concomitant]
     Active Substance: FISH OIL
  35. HYDROXYCHLOROQUINE SULFATE. [Concomitant]
     Active Substance: HYDROXYCHLOROQUINE SULFATE
  36. CHLORHEXIDINE [Suspect]
     Active Substance: CHLORHEXIDINE
     Indication: PRODUCT USED FOR UNKNOWN INDICATION
     Route: 048
  37. CHOLECALCIFEROL [Suspect]
     Active Substance: CHOLECALCIFEROL
     Indication: PRODUCT USED FOR UNKNOWN INDICATION
     Route: 065
  38. ABATACEPT [Suspect]
     Active Substance: ABATACEPT
     Indication: RHEUMATOID ARTHRITIS
     Route: 058
  39. SALBUTAMOL [Concomitant]
     Active Substance: ALBUTEROL
  40. ZOPICLONE [Concomitant]
     Active Substance: ZOPICLONE
  41. DOCONEXENT. [Concomitant]
     Active Substance: DOCONEXENT
  42. OXYCODONE [Suspect]
     Active Substance: OXYCODONE
     Indication: PRODUCT USED FOR UNKNOWN INDICATION
     Route: 065
  43. OXYCODONE HYDROCHLORIDE. [Suspect]
     Active Substance: OXYCODONE HYDROCHLORIDE
     Indication: PRODUCT USED FOR UNKNOWN INDICATION
     Route: 065
  44. PERCOCET [Suspect]
     Active Substance: ACETAMINOPHEN\OXYCODONE HYDROCHLORIDE
     Indication: PRODUCT USED FOR UNKNOWN INDICATION
     Route: 065
  45. VENTOLIN [Concomitant]
     Active Substance: ALBUTEROL SULFATE
  46. PANTOLOC [Concomitant]
     Active Substance: PANTOPRAZOLE SODIUM
  47. PANTOPRAZOLE [Concomitant]
     Active Substance: PANTOPRAZOLE
  48. VITAMIN C [Concomitant]
     Active Substance: ASCORBIC ACID

REACTIONS (43)
  - Hypersensitivity [Unknown]
  - Insomnia [Unknown]
  - Lower respiratory tract infection [Unknown]
  - Weight increased [Unknown]
  - Back pain [Unknown]
  - Body temperature increased [Unknown]
  - Night sweats [Unknown]
  - Intentional product use issue [Unknown]
  - Dyspnoea [Unknown]
  - Nasopharyngitis [Unknown]
  - Pain [Unknown]
  - Swelling [Unknown]
  - Drug ineffective [Unknown]
  - Arthralgia [Unknown]
  - Infection [Unknown]
  - Stomatitis [Unknown]
  - Asthenia [Unknown]
  - Muscle spasticity [Unknown]
  - Blister [Unknown]
  - Confusional state [Unknown]
  - Irritable bowel syndrome [Unknown]
  - Peripheral swelling [Unknown]
  - Sinusitis [Unknown]
  - Diarrhoea [Unknown]
  - Headache [Unknown]
  - Sleep disorder due to general medical condition, insomnia type [Unknown]
  - Muscle injury [Unknown]
  - Pyrexia [Unknown]
  - Pruritus [Unknown]
  - Urticaria [Unknown]
  - Vomiting [Unknown]
  - Folliculitis [Unknown]
  - Ill-defined disorder [Unknown]
  - Impaired healing [Unknown]
  - Rash [Unknown]
  - Therapeutic product effect decreased [Unknown]
  - Abdominal pain upper [Unknown]
  - Ear pain [Unknown]
  - Fatigue [Unknown]
  - Gastrointestinal disorder [Unknown]
  - Joint swelling [Unknown]
  - Respiratory disorder [Unknown]
  - Contusion [Unknown]
